FAERS Safety Report 9563628 (Version 1)
Quarter: 2013Q1

REPORT INFORMATION
  Report Type: Spontaneous
  Country: US (occurrence: None)
  Receive Date: 20121227
  Receipt Date: 20121227
  Transmission Date: 20140127
  Serious: Yes (Other)
  Sender: FDA-Public Use
  Company Number: PHEH2012US003030

PATIENT
  Age: 68 Year
  Sex: Male
  Weight: 83.9 kg

DRUGS (3)
  1. EXJADE [Suspect]
     Indication: APLASIA PURE RED CELL
     Route: 048
     Dates: start: 20110906
  2. METFORMIN (METFORMIN) [Concomitant]
  3. CEFEPIME (CEFEPIME) [Concomitant]

REACTIONS (2)
  - Renal failure acute [None]
  - Dehydration [None]
